FAERS Safety Report 6642457-1 (Version None)
Quarter: 2010Q1

REPORT INFORMATION
  Report Type: 
  Country: None (occurrence: None)
  Receive Date: 20100319
  Receipt Date: 20100309
  Transmission Date: 20100710
  Serious: Yes (Other)
  Sender: FDA-Public Use
  Company Number: B0634991A

PATIENT
  Age: 54 Year
  Sex: Female
  Weight: 85 kg

DRUGS (3)
  1. ALLI [Suspect]
     Route: 065
     Dates: start: 20100210, end: 20100211
  2. EUTHYROX [Concomitant]
  3. FAMOTIDIN [Concomitant]

REACTIONS (3)
  - CONSTIPATION [None]
  - HAEMATOCHEZIA [None]
  - PROCTALGIA [None]
